FAERS Safety Report 9637579 (Version 2)
Quarter: 2013Q4

REPORT INFORMATION
  Report Type: Report from Study
  Country: UA (occurrence: UA)
  Receive Date: 20131022
  Receipt Date: 20131118
  Transmission Date: 20140711
  Serious: Yes (Life-Threatening, Hospitalization)
  Sender: FDA-Public Use
  Company Number: UA-EISAI INC-E7389-04312-CLI-UA

PATIENT
  Age: 61 Year
  Sex: Male

DRUGS (4)
  1. E7389 (BOLD) [Suspect]
     Indication: BLADDER CANCER
     Route: 041
     Dates: start: 20130725
  2. CISPLATIN [Suspect]
     Indication: BLADDER CANCER
     Route: 041
     Dates: start: 20130725
  3. GEMCITABINE [Suspect]
     Indication: BLADDER CANCER
     Route: 041
     Dates: start: 20130725
  4. SORBIFER [Concomitant]
     Indication: PRODUCT USED FOR UNKNOWN INDICATION
     Route: 048
     Dates: start: 20131004

REACTIONS (1)
  - Neutropenia [Recovering/Resolving]
